FAERS Safety Report 7969912-6 (Version None)
Quarter: 2011Q4

REPORT INFORMATION
  Report Type: 
  Country: None (occurrence: None)
  Receive Date: 20111122
  Receipt Date: 20110721
  Transmission Date: 20120403
  Serious: Yes (Other)
  Sender: FDA-Public Use
  Company Number: PHHY2011US60951

PATIENT
  Age: 53 Year
  Sex: Female

DRUGS (6)
  1. LISINOPRIL [Concomitant]
  2. BACLOFEN [Concomitant]
  3. GILENYA [Suspect]
     Indication: MULTIPLE SCLEROSIS
     Dosage: 0.5 MG, QD, ORAL
     Route: 048
     Dates: start: 20110706
  4. PAXIL [Concomitant]
  5. PAMELOR [Concomitant]
  6. NAPROXEN [Concomitant]

REACTIONS (3)
  - ATRIOVENTRICULAR BLOCK FIRST DEGREE [None]
  - HEADACHE [None]
  - FATIGUE [None]
